FAERS Safety Report 10694629 (Version 1)
Quarter: 2015Q1

REPORT INFORMATION
  Report Type: Spontaneous
  Country: US (occurrence: None)
  Receive Date: 20150105
  Receipt Date: 20150105
  Transmission Date: 20150721
  Serious: Yes (Hospitalization)
  Sender: FDA-Public Use
  Company Number: None

PATIENT
  Age: 89 Year
  Sex: Male

DRUGS (11)
  1. ASA [Suspect]
     Active Substance: ASPIRIN
  2. VIT C 500 MG [Concomitant]
  3. ATORVASTIN [Suspect]
     Active Substance: ATORVASTATIN
  4. BACTRIM DS [Suspect]
     Active Substance: SULFAMETHOXAZOLE\TRIMETHOPRIM
     Indication: ANGINA PECTORIS
     Route: 048
  5. NORVASC [Suspect]
     Active Substance: AMLODIPINE BESYLATE
  6. RANEXA [Suspect]
     Active Substance: RANOLAZINE
     Indication: ANGINA PECTORIS
     Dosage: 1000 MG 1 BID  BY MOUTH
     Route: 048
     Dates: start: 20140610, end: 20141128
  7. MULTI VITAMIN [Concomitant]
     Active Substance: VITAMINS
  8. L ARGININE [Concomitant]
     Active Substance: ARGININE
  9. PLAVIX [Suspect]
     Active Substance: CLOPIDOGREL BISULFATE
     Dates: start: 20141210
  10. COREG [Suspect]
     Active Substance: CARVEDILOL
  11. VIT D 3  200MG [Concomitant]

REACTIONS (3)
  - Muscle twitching [None]
  - Coordination abnormal [None]
  - Speech disorder [None]

NARRATIVE: CASE EVENT DATE: 20141127
